FAERS Safety Report 8812398 (Version 1)
Quarter: 2012Q4

REPORT INFORMATION
  Report Type: Report from Study
  Country: GB (occurrence: GB)
  Receive Date: 20120927
  Receipt Date: 20120927
  Transmission Date: 20130627
  Serious: Yes (Hospitalization, Other)
  Sender: FDA-Public Use
  Company Number: GB-JNJFOC-20120909381

PATIENT
  Age: 0 Year
  Sex: Male
  Weight: 2.32 kg

DRUGS (6)
  1. REMICADE [Suspect]
     Indication: FOETAL EXPOSURE DURING PREGNANCY
     Route: 042
     Dates: start: 20080630
  2. REMICADE [Suspect]
     Indication: FOETAL EXPOSURE DURING PREGNANCY
     Route: 042
     Dates: start: 20080519
  3. REMICADE [Suspect]
     Indication: FOETAL EXPOSURE DURING PREGNANCY
     Route: 042
     Dates: start: 20080506
  4. FOLIC ACID [Concomitant]
     Indication: FOETAL EXPOSURE DURING PREGNANCY
  5. VITAMIN B12 [Concomitant]
     Indication: FOETAL EXPOSURE DURING PREGNANCY
  6. MERCAPTOPURINE [Concomitant]
     Indication: FOETAL EXPOSURE DURING PREGNANCY
     Dates: start: 20080506, end: 2011

REACTIONS (2)
  - Bradycardia foetal [Unknown]
  - Low birth weight baby [Unknown]
